FAERS Safety Report 15392163 (Version 2)
Quarter: 2018Q4

REPORT INFORMATION
  Report Type: Report from Study
  Country: None (occurrence: BR)
  Receive Date: 20180917
  Receipt Date: 20181210
  Transmission Date: 20190204
  Serious: No
  Sender: FDA-Public Use
  Company Number: BR-ABBVIE-18K-020-2483848-00

PATIENT
  Sex: Male
  Weight: 108 kg

DRUGS (3)
  1. HUMIRA [Suspect]
     Active Substance: ADALIMUMAB
     Indication: ANKYLOSING SPONDYLITIS
     Route: 058
     Dates: start: 20180515
  2. ELIFOR [Concomitant]
     Indication: ANKYLOSING SPONDYLITIS
  3. MIOSAN [Concomitant]
     Active Substance: CYCLOBENZAPRINE
     Indication: ANKYLOSING SPONDYLITIS

REACTIONS (2)
  - Memory impairment [Recovered/Resolved]
  - Emotional disorder [Recovered/Resolved]
